FAERS Safety Report 7641997-6 (Version None)
Quarter: 2011Q3

REPORT INFORMATION
  Report Type: 
  Country: None (occurrence: None)
  Receive Date: 20110728
  Receipt Date: 20110726
  Transmission Date: 20111222
  Serious: Yes (Other)
  Sender: FDA-Public Use
  Company Number: US-PERRIGO-11US005637

PATIENT
  Sex: Male

DRUGS (1)
  1. CHILDREN'S IBUPROFEN [Suspect]
     Indication: PYREXIA
     Dosage: UNK, ONCE
     Route: 048
     Dates: start: 20110710, end: 20110710

REACTIONS (4)
  - FACIAL PAIN [None]
  - VISUAL IMPAIRMENT [None]
  - HYPERSENSITIVITY [None]
  - SWELLING FACE [None]
